FAERS Safety Report 4531760-7 (Version None)
Quarter: 2004Q4

REPORT INFORMATION
  Report Type: 
  Country: None (occurrence: None)
  Receive Date: 20041220
  Receipt Date: 20041202
  Transmission Date: 20050328
  Serious: Yes (Other)
  Sender: FDA-Public Use
  Company Number: JP-ROCHE-388456

PATIENT
  Age: 62 Year
  Sex: Female

DRUGS (4)
  1. TAMIFLU [Suspect]
     Route: 048
     Dates: start: 20041124, end: 20041124
  2. CERCINE [Concomitant]
  3. VOLTAREN [Concomitant]
  4. CHLOPHEDRIN [Concomitant]
     Indication: COUGH

REACTIONS (1)
  - SHOCK [None]
